FAERS Safety Report 10194563 (Version 1)
Quarter: 2014Q2

REPORT INFORMATION
  Report Type: Spontaneous
  Country: US (occurrence: US)
  Receive Date: 20140526
  Receipt Date: 20140526
  Transmission Date: 20141212
  Serious: No
  Sender: FDA-Public Use
  Company Number: US-BIOGENIDEC-2014BI043959

PATIENT
  Age: 55 Year
  Sex: Female

DRUGS (4)
  1. TECFIDERA [Suspect]
     Indication: MULTIPLE SCLEROSIS
     Route: 048
     Dates: start: 20140415
  2. LEVOTHYROXINE SODIUM [Concomitant]
  3. LITHIUM CARBONATE [Concomitant]
  4. DOCUSATE SODIUM [Concomitant]

REACTIONS (3)
  - Insomnia [Unknown]
  - Mental status changes [Unknown]
  - Gait disturbance [Unknown]
